FAERS Safety Report 6214564-9 (Version None)
Quarter: 2009Q2

REPORT INFORMATION
  Report Type: 
  Country: None (occurrence: None)
  Receive Date: 20090604
  Receipt Date: 20090529
  Transmission Date: 20091009
  Serious: Yes (Other)
  Sender: FDA-Public Use
  Company Number: PHHY2009DE21033

PATIENT
  Sex: Male

DRUGS (2)
  1. RASILEZ [Suspect]
     Indication: HYPERTENSION
     Dosage: 150 MG/DAY
     Dates: start: 20081201
  2. RASILEZ [Suspect]
     Dosage: UNK

REACTIONS (6)
  - ALOPECIA [None]
  - ALOPECIA AREATA [None]
  - INFLAMMATION [None]
  - PRURITUS [None]
  - PRURITUS GENERALISED [None]
  - SKIN DISORDER [None]
